FAERS Safety Report 6182312-7 (Version None)
Quarter: 2009Q2

REPORT INFORMATION
  Report Type: 
  Country: None (occurrence: None)
  Receive Date: 20090505
  Receipt Date: 20090505
  Transmission Date: 20091009
  Serious: Yes (Other)
  Sender: FDA-Public Use
  Company Number: None

PATIENT
  Age: 63 Year
  Sex: Female

DRUGS (1)
  1. ANDROGEL [Suspect]
     Dosage: DAILY TOPICAL
     Route: 061

REACTIONS (6)
  - ACCIDENTAL EXPOSURE [None]
  - ALOPECIA [None]
  - ENLARGED CLITORIS [None]
  - HAIR GROWTH ABNORMAL [None]
  - MUSCLE MASS [None]
  - VOCAL CORD DISORDER [None]
